FAERS Safety Report 14264227 (Version 1)
Quarter: 2017Q4

REPORT INFORMATION
  Report Type: Spontaneous
  Country: FR (occurrence: FR)
  Receive Date: 20171208
  Receipt Date: 20171208
  Transmission Date: 20180321
  Serious: Yes (Other)
  Sender: FDA-Public Use
  Company Number: FR-PFIZER INC-2017515945

PATIENT
  Age: 87 Year
  Sex: Female

DRUGS (2)
  1. PREVISCAN /00261401/ [Concomitant]
     Active Substance: PENTOXIFYLLINE
  2. LYRICA [Suspect]
     Active Substance: PREGABALIN
     Dosage: 75 MG, 2X/DAY
     Dates: start: 201711

REACTIONS (3)
  - Visual acuity reduced [Not Recovered/Not Resolved]
  - Macular degeneration [Unknown]
  - Visual impairment [Recovered/Resolved]
